FAERS Safety Report 7364943-1 (Version None)
Quarter: 2011Q1

REPORT INFORMATION
  Report Type: 
  Country: None (occurrence: None)
  Receive Date: 20110321
  Receipt Date: 20110310
  Transmission Date: 20110831
  Serious: Yes (Other)
  Sender: FDA-Public Use
  Company Number: JP-ASTRAZENECA-2011SE07480

PATIENT
  Sex: Male

DRUGS (7)
  1. ZOSYN [Concomitant]
     Route: 041
     Dates: start: 20100616, end: 20100627
  2. BIOFERMIN R [Concomitant]
     Route: 048
     Dates: start: 20100602, end: 20100715
  3. FUNGUARD [Concomitant]
     Route: 041
     Dates: start: 20100603, end: 20100707
  4. VANCOMYCIN [Concomitant]
     Route: 041
     Dates: start: 20100615, end: 20100624
  5. FOSCAVIR [Suspect]
     Route: 041
     Dates: start: 20100623, end: 20100716
  6. TAKEPRON [Concomitant]
     Route: 048
     Dates: start: 20100528
  7. URSO 250 [Concomitant]
     Route: 048
     Dates: start: 20100602

REACTIONS (1)
  - NEPHROPATHY [None]
